FAERS Safety Report 23361961 (Version 1)
Quarter: 2024Q1

REPORT INFORMATION
  Report Type: Spontaneous
  Country: US (occurrence: US)
  Receive Date: 20240103
  Receipt Date: 20240103
  Transmission Date: 20240409
  Serious: Yes (Hospitalization, Other)
  Sender: FDA-Public Use
  Company Number: US-GSK-US2023181604

PATIENT

DRUGS (2)
  1. BREO ELLIPTA [Suspect]
     Active Substance: FLUTICASONE FUROATE\VILANTEROL TRIFENATATE
     Indication: Asthma
     Dosage: 1 PUFF(S), MO BREO ELLIPTA 200/25MCG USE 1 INHALATION BY MOUTH DAILY AS DIRECTED
     Dates: start: 202310, end: 20231119
  2. INCRUSE ELLIPTA [Suspect]
     Active Substance: UMECLIDINIUM BROMIDE
     Indication: Asthma
     Dosage: 1 PUFF(S), QD INCRUSE ELLIPTA 62.5MCG USE 1 INHALATION BY MOUTH DAILY AS DIRECTED
     Dates: start: 202310, end: 20231119

REACTIONS (3)
  - Pneumonia [Unknown]
  - Eye irritation [Unknown]
  - Visual impairment [Unknown]

NARRATIVE: CASE EVENT DATE: 20231019
